FAERS Safety Report 5268881-X (Version None)
Quarter: 2007Q1

REPORT INFORMATION
  Report Type: 
  Country: None (occurrence: None)
  Receive Date: 20070319
  Receipt Date: 20070306
  Transmission Date: 20070707
  Serious: Yes (Death)
  Sender: FDA-Public Use
  Company Number: US-JNJFOC-20070302403

PATIENT
  Age: 1 Month
  Sex: Male

DRUGS (1)
  1. CONCENTRATED INFANTS TYLENOL PLUS COLD [Suspect]
     Indication: WHEEZING
     Dosage: 1/2 DROPPER

REACTIONS (2)
  - ANOXIC ENCEPHALOPATHY [None]
  - SUDDEN INFANT DEATH SYNDROME [None]
